FAERS Safety Report 4634679-6 (Version None)
Quarter: 2005Q2

REPORT INFORMATION
  Report Type: 
  Country: None (occurrence: None)
  Receive Date: 20050413
  Receipt Date: 20050413
  Transmission Date: 20051028
  Serious: Yes (Other)
  Sender: FDA-Public Use
  Company Number: None

PATIENT
  Age: 55 Year
  Sex: Female
  Weight: 105.6881 kg

DRUGS (3)
  1. AVELOX [Suspect]
     Indication: SINUSITIS
     Dosage: 400 MG DAILY
     Dates: start: 20050222, end: 20050306
  2. PREDNISONE [Concomitant]
  3. BENADRYL [Concomitant]

REACTIONS (7)
  - ERYTHEMA [None]
  - OEDEMA [None]
  - PAIN [None]
  - PRURITUS [None]
  - SKIN DISCOLOURATION [None]
  - SWELLING [None]
  - URTICARIA [None]
